FAERS Safety Report 14568011 (Version 1)
Quarter: 2018Q1

REPORT INFORMATION
  Report Type: Spontaneous
  Country: GB (occurrence: GB)
  Receive Date: 20180223
  Receipt Date: 20180223
  Transmission Date: 20180509
  Serious: Yes (Other)
  Sender: FDA-Public Use
  Company Number: GB-TEVA-2018-GB-861553

PATIENT
  Age: 63 Year
  Sex: Male

DRUGS (5)
  1. DIAZEPAM. [Concomitant]
     Active Substance: DIAZEPAM
     Indication: PRODUCT USED FOR UNKNOWN INDICATION
     Dosage: 1 DOSAGE FORMS DAILY; ONE TAKEN AT NIGHT
     Route: 065
     Dates: start: 20171024, end: 20171029
  2. CO-CODAMOL 30/500 MG TABLETS [Concomitant]
     Indication: MUSCLE STRAIN
     Dosage: ONE OR TWO TO BE TAKEN UP TO A MAXIMUM OF FOUR TIMES A DAY AS REQUIRED
     Route: 065
     Dates: start: 20171024
  3. ATORVASTATIN [Concomitant]
     Active Substance: ATORVASTATIN
     Indication: BLOOD CHOLESTEROL INCREASED
     Route: 065
     Dates: end: 20170930
  4. NAPROXEN TABLETS BP 500 MG [Suspect]
     Active Substance: NAPROXEN
     Indication: MUSCLE STRAIN
     Dosage: 1000 MILLIGRAM DAILY; ONE TO BE TAKEN TWICE A DAY AFTER FOOD
     Route: 065
     Dates: start: 20171103, end: 20171116
  5. VOLTAROL EMULGEL [Concomitant]
     Indication: MUSCLE STRAIN
     Dosage: APPLIED ONCE A DAY
     Route: 061
     Dates: end: 201711

REACTIONS (3)
  - Rash [Recovered/Resolved with Sequelae]
  - Blister [Recovered/Resolved]
  - Wound haemorrhage [Recovered/Resolved]

NARRATIVE: CASE EVENT DATE: 201711
